FAERS Safety Report 13183176 (Version 1)
Quarter: 2017Q1

REPORT INFORMATION
  Report Type: Spontaneous
  Country: DE (occurrence: DE)
  Receive Date: 20170203
  Receipt Date: 20170203
  Transmission Date: 20170428
  Serious: Yes (Other)
  Sender: FDA-Public Use
  Company Number: PHHY2017DE013108

PATIENT
  Age: 77 Year
  Sex: Female

DRUGS (2)
  1. FEMARA [Suspect]
     Active Substance: LETROZOLE
     Indication: BREAST CANCER
     Dosage: 2.5 MG, QD
     Route: 065
     Dates: start: 2004, end: 2016
  2. FEMARA [Suspect]
     Active Substance: LETROZOLE
     Dosage: 1.25 MG, QD
     Route: 065
     Dates: start: 2016

REACTIONS (4)
  - Ovarian disorder [Unknown]
  - Glucose tolerance impaired [Unknown]
  - Hypercholesterolaemia [Unknown]
  - Brain stem infarction [Recovered/Resolved with Sequelae]

NARRATIVE: CASE EVENT DATE: 2016
